FAERS Safety Report 25037902 (Version 1)
Quarter: 2025Q1

REPORT INFORMATION
  Report Type: Spontaneous
  Country: BR (occurrence: BR)
  Receive Date: 20250304
  Receipt Date: 20250304
  Transmission Date: 20250408
  Serious: Yes (Death, Other)
  Sender: REGENERON
  Company Number: BR-ADIUM-BR-0215-20250221

PATIENT

DRUGS (1)
  1. LIBTAYO [Suspect]
     Active Substance: CEMIPLIMAB-RWLC
     Indication: Non-small cell lung cancer
     Dates: start: 2024

REACTIONS (1)
  - Death [Fatal]
